FAERS Safety Report 19399869 (Version 1)
Quarter: 2021Q2

REPORT INFORMATION
  Report Type: Spontaneous
  Country: US (occurrence: US)
  Receive Date: 20210610
  Receipt Date: 20210610
  Transmission Date: 20210717
  Serious: No
  Sender: FDA-Public Use
  Company Number: US-CELGENEUS-USA-20210600179

PATIENT
  Sex: Male
  Weight: 63.56 kg

DRUGS (1)
  1. REVLIMID [Suspect]
     Active Substance: LENALIDOMIDE
     Indication: PLASMA CELL MYELOMA
     Dosage: 10 MILLIGRAM
     Route: 048
     Dates: start: 20201121

REACTIONS (4)
  - Peripheral swelling [Recovering/Resolving]
  - Anaemia [Unknown]
  - Full blood count decreased [Recovering/Resolving]
  - Cough [Recovered/Resolved]
